FAERS Safety Report 22109450 (Version 2)
Quarter: 2023Q2

REPORT INFORMATION
  Report Type: Spontaneous
  Country: JP (occurrence: JP)
  Receive Date: 20230317
  Receipt Date: 20230511
  Transmission Date: 20230721
  Serious: Yes (Other)
  Sender: FDA-Public Use
  Company Number: JP-GILEAD-2023-0617685

PATIENT
  Age: 65 Year
  Sex: Male
  Weight: 59.5 kg

DRUGS (22)
  1. VEKLURY [Suspect]
     Active Substance: REMDESIVIR
     Indication: COVID-19
     Dosage: 200 MG, QD
     Route: 041
     Dates: start: 20230124, end: 20230124
  2. VEKLURY [Suspect]
     Active Substance: REMDESIVIR
     Dosage: 100 MG, QD
     Route: 041
     Dates: start: 20230125, end: 20230202
  3. VEKLURY [Suspect]
     Active Substance: REMDESIVIR
     Dosage: 100 MG, QD
     Route: 041
     Dates: start: 20230209, end: 20230213
  4. VEKLURY [Suspect]
     Active Substance: REMDESIVIR
     Dosage: 200 MG, QD
     Route: 041
     Dates: start: 20230221, end: 20230221
  5. VEKLURY [Suspect]
     Active Substance: REMDESIVIR
     Dosage: 100 MG, QD
     Route: 041
     Dates: start: 20230222, end: 20230226
  6. DECADRON [Concomitant]
     Active Substance: DEXAMETHASONE
     Indication: COVID-19
     Dosage: 6 MG, QD
     Route: 048
     Dates: start: 20230128, end: 20230130
  7. DECADRON [Concomitant]
     Active Substance: DEXAMETHASONE
     Dosage: 6 MG, QD
     Route: 048
     Dates: start: 20230206, end: 20230213
  8. DECADRON [Concomitant]
     Active Substance: DEXAMETHASONE
     Dosage: 5 MG, QD
     Route: 048
     Dates: start: 20230214, end: 20230217
  9. DECADRON [Concomitant]
     Active Substance: DEXAMETHASONE
     Dosage: 4 MG, QD
     Route: 048
     Dates: start: 20230218, end: 20230223
  10. DECADRON [Concomitant]
     Active Substance: DEXAMETHASONE
     Dosage: 2 MG, QD
     Route: 048
     Dates: start: 20230224, end: 20230226
  11. DECADRON [Concomitant]
     Active Substance: DEXAMETHASONE
     Dosage: 1.5 MG, QD
     Route: 048
     Dates: start: 20230227, end: 20230228
  12. SOLU-MEDROL [Concomitant]
     Active Substance: METHYLPREDNISOLONE SODIUM SUCCINATE
     Dosage: 40 MG, QD
     Route: 041
     Dates: start: 20230124, end: 20230127
  13. CEFEPIME [Concomitant]
     Active Substance: CEFEPIME HYDROCHLORIDE
     Dosage: 1 G, BID
     Route: 041
     Dates: start: 20230210, end: 20230217
  14. PIPERACILLIN SODIUM\TAZOBACTAM SODIUM [Concomitant]
     Active Substance: PIPERACILLIN SODIUM\TAZOBACTAM SODIUM
     Dosage: 4.5 G, TID
     Route: 041
     Dates: start: 20230221, end: 20230227
  15. NIFEDIPINE [Concomitant]
     Active Substance: NIFEDIPINE
     Dosage: 40 MG, QD
     Route: 048
  16. SULFAMETHOXAZOLE\TRIMETHOPRIM [Concomitant]
     Active Substance: SULFAMETHOXAZOLE\TRIMETHOPRIM
     Dosage: 0.5 DOSAGE FORM, QD
     Route: 048
  17. VONOPRAZAN FUMARATE [Concomitant]
     Active Substance: VONOPRAZAN FUMARATE
     Dosage: 10 MG, QD
     Route: 048
  18. MAGNESIUM OXIDE [Concomitant]
     Active Substance: MAGNESIUM OXIDE
     Dosage: 330 MG, QD
     Route: 048
  19. DIMEMORFAN PHOSPHATE [Concomitant]
     Active Substance: DIMEMORFAN PHOSPHATE
     Dosage: 10 MG, TID
     Route: 048
     Dates: start: 20230209
  20. AUGMENTIN [Concomitant]
     Active Substance: AMOXICILLIN\CLAVULANATE POTASSIUM
     Dosage: 250 MG, TID
     Route: 048
     Dates: start: 20230218
  21. CEFTRIAXONE [Concomitant]
     Active Substance: CEFTRIAXONE
     Dosage: 1 G, QD
     Route: 041
     Dates: start: 20230124, end: 20230202
  22. VENILON [Concomitant]
     Active Substance: HUMAN IMMUNOGLOBULIN G
     Dosage: 5000 MG, QD
     Route: 041
     Dates: start: 20230209, end: 20230210

REACTIONS (1)
  - COVID-19 pneumonia [Unknown]

NARRATIVE: CASE EVENT DATE: 20230206
